FAERS Safety Report 15372338 (Version 1)
Quarter: 2018Q3

REPORT INFORMATION
  Report Type: Spontaneous
  Country: DE (occurrence: DE)
  Receive Date: 20180911
  Receipt Date: 20180911
  Transmission Date: 20181010
  Serious: Yes (Other)
  Sender: FDA-Public Use
  Company Number: DE-BAUSCH-BL-2018-024796

PATIENT
  Age: 63 Year
  Sex: Female

DRUGS (8)
  1. FLUOROURACIL. [Suspect]
     Active Substance: FLUOROURACIL
     Indication: METASTASIS
     Dosage: CYTOSTATIC THERAPY WAS ADMINISTERED IN REDUCED DOSE (75 PERCENT)
     Route: 065
     Dates: start: 201607
  2. OXALIPLATIN. [Suspect]
     Active Substance: OXALIPLATIN
     Indication: METASTASIS
     Dosage: CYTOSTATIC THERAPY WAS ADMINISTERED IN REDUCED DOSE (75 PERCENT)
     Route: 065
     Dates: start: 201607
  3. FOLINIC ACID [Suspect]
     Active Substance: LEUCOVORIN
     Indication: ADENOCARCINOMA PANCREAS
  4. OXALIPLATIN. [Suspect]
     Active Substance: OXALIPLATIN
     Indication: ADENOCARCINOMA PANCREAS
  5. IRINOTECAN [Suspect]
     Active Substance: IRINOTECAN
     Indication: ADENOCARCINOMA PANCREAS
  6. FLUOROURACIL. [Suspect]
     Active Substance: FLUOROURACIL
     Indication: ADENOCARCINOMA PANCREAS
  7. IRINOTECAN [Suspect]
     Active Substance: IRINOTECAN
     Indication: METASTASIS
     Dosage: CYTOSTATIC THERAPY WAS ADMINISTERED IN REDUCED DOSE (75 PERCENT)
     Route: 065
     Dates: start: 201607
  8. FOLINIC ACID [Suspect]
     Active Substance: LEUCOVORIN
     Indication: METASTASIS
     Dosage: QCY
     Route: 065
     Dates: start: 201607

REACTIONS (1)
  - Polyneuropathy [Unknown]

NARRATIVE: CASE EVENT DATE: 2016
